FAERS Safety Report 9857958 (Version 2)
Quarter: 2014Q2

REPORT INFORMATION
  Report Type: Spontaneous
  Country: US (occurrence: US)
  Receive Date: 20140131
  Receipt Date: 20140428
  Transmission Date: 20141212
  Serious: No
  Sender: FDA-Public Use
  Company Number: US-PFIZER INC-2014025915

PATIENT
  Age: 27 Year
  Sex: Male
  Weight: 97.51 kg

DRUGS (2)
  1. LYRICA [Suspect]
     Indication: NERVE INJURY
     Dosage: 300 MG, DAILY
     Dates: start: 2011
  2. LYRICA [Suspect]
     Indication: NEURALGIA

REACTIONS (1)
  - Drug withdrawal syndrome [Unknown]
